FAERS Safety Report 4461877-7 (Version None)
Quarter: 2004Q3

REPORT INFORMATION
  Report Type: 
  Country: None (occurrence: None)
  Receive Date: 20040929
  Receipt Date: 20031110
  Transmission Date: 20050211
  Serious: Yes (Other)
  Sender: FDA-Public Use
  Company Number: US-GLAXOSMITHKLINE-A0438880A

PATIENT
  Age: 47 Year
  Sex: Female
  Weight: 104.5 kg

DRUGS (1)
  1. SEREVENT [Suspect]
     Indication: ASTHMA
     Dosage: 1PUFF TWICE PER DAY
     Route: 055
     Dates: start: 20031104, end: 20031105

REACTIONS (6)
  - HYPERSENSITIVITY [None]
  - HYPOAESTHESIA [None]
  - LOCAL SWELLING [None]
  - PRURITUS [None]
  - RASH PRURITIC [None]
  - SWELLING FACE [None]
